FAERS Safety Report 6510743-1 (Version None)
Quarter: 2009Q4

REPORT INFORMATION
  Report Type: 
  Country: None (occurrence: None)
  Receive Date: 20091221
  Receipt Date: 20091221
  Transmission Date: 20100525
  Serious: No
  Sender: FDA-Public Use
  Company Number: None

PATIENT
  Age: 67 Year
  Sex: Female
  Weight: 90.2658 kg

DRUGS (1)
  1. LOVAZA [Suspect]
     Indication: BLOOD CHOLESTEROL INCREASED
     Dosage: 2 CAPSULE TWICE A DAY PO
     Route: 048
     Dates: start: 20090101, end: 20091210

REACTIONS (4)
  - BLOOD CHOLESTEROL INCREASED [None]
  - DRUG TOLERANCE DECREASED [None]
  - ECONOMIC PROBLEM [None]
  - WEIGHT INCREASED [None]
